FAERS Safety Report 23010649 (Version 2)
Quarter: 2023Q4

REPORT INFORMATION
  Report Type: Spontaneous
  Country: JP (occurrence: JP)
  Receive Date: 20230929
  Receipt Date: 20231110
  Transmission Date: 20240110
  Serious: Yes (Disabling)
  Sender: FDA-Public Use
  Company Number: JP-OTSUKA-2022_046840

PATIENT
  Age: 67 Year
  Sex: Male

DRUGS (9)
  1. ABILIFY [Suspect]
     Active Substance: ARIPIPRAZOLE
     Indication: Psychiatric symptom
     Dosage: 6MG/DAY
     Route: 065
  2. ABILIFY [Suspect]
     Active Substance: ARIPIPRAZOLE
     Indication: Irritability
     Dosage: 3 MG, BID
     Route: 065
  3. ABILIFY [Suspect]
     Active Substance: ARIPIPRAZOLE
     Indication: Disinhibition
     Dosage: 3 MG, QID
     Route: 065
  4. ABILIFY [Suspect]
     Active Substance: ARIPIPRAZOLE
     Indication: Cerebral small vessel ischaemic disease
  5. CARBAMAZEPINE [Concomitant]
     Active Substance: CARBAMAZEPINE
     Indication: Product used for unknown indication
     Dosage: 300 MG
     Route: 065
  6. CARBAMAZEPINE [Concomitant]
     Active Substance: CARBAMAZEPINE
     Dosage: 400 MG
     Route: 065
  7. CARBAMAZEPINE [Concomitant]
     Active Substance: CARBAMAZEPINE
     Dosage: 200 MG
     Route: 065
  8. PERAMPANEL [Concomitant]
     Active Substance: PERAMPANEL
     Indication: Product used for unknown indication
     Dosage: 6 MG
     Route: 065
  9. PERAMPANEL [Concomitant]
     Active Substance: PERAMPANEL
     Dosage: 8 MG
     Route: 065

REACTIONS (4)
  - Wheelchair user [Unknown]
  - Slow response to stimuli [Unknown]
  - Psychomotor hyperactivity [Unknown]
  - Product use in unapproved indication [Unknown]
